FAERS Safety Report 18494175 (Version 1)
Quarter: 2020Q4

REPORT INFORMATION
  Report Type: Report from Study
  Country: DE (occurrence: DE)
  Receive Date: 20201111
  Receipt Date: 20201111
  Transmission Date: 20210114
  Serious: Yes (Hospitalization)
  Sender: FDA-Public Use
  Company Number: DE-TAKEDA-2020TUS047068

PATIENT
  Age: 40 Year
  Sex: Female

DRUGS (8)
  1. OPIUM TINCTURE [Concomitant]
     Active Substance: MORPHINE
     Indication: GASTROENTERITIS RADIATION
     Dosage: 100 MILLIGRAM
     Route: 048
     Dates: start: 201511, end: 201701
  2. TEDUGLUTIDE [Suspect]
     Active Substance: TEDUGLUTIDE
     Indication: SHORT-BOWEL SYNDROME
     Dosage: 5 MILLIGRAM
     Route: 065
     Dates: start: 20150410
  3. OPIUM TINCTURE [Concomitant]
     Active Substance: MORPHINE
     Dosage: 200 MILLIGRAM
     Route: 048
     Dates: start: 201701
  4. POSTERISAN AKUT [Concomitant]
     Indication: HAEMORRHOIDS
     Dosage: 50 MILLIGRAM
     Route: 062
     Dates: start: 201902
  5. RIFAXIMIN. [Concomitant]
     Active Substance: RIFAXIMIN
     Indication: DIARRHOEA
     Dosage: 400 MILLIGRAM, BID
     Route: 048
     Dates: start: 201902
  6. TEDUGLUTIDE [Suspect]
     Active Substance: TEDUGLUTIDE
     Indication: SHORT-BOWEL SYNDROME
     Dosage: 5 MILLIGRAM
     Route: 065
     Dates: start: 20150410
  7. TEDUGLUTIDE [Suspect]
     Active Substance: TEDUGLUTIDE
     Indication: SHORT-BOWEL SYNDROME
     Dosage: 5 MILLIGRAM
     Route: 065
     Dates: start: 20150410
  8. TEDUGLUTIDE [Suspect]
     Active Substance: TEDUGLUTIDE
     Indication: SHORT-BOWEL SYNDROME
     Dosage: 5 MILLIGRAM
     Route: 065
     Dates: start: 20150410

REACTIONS (2)
  - Device occlusion [Recovered/Resolved]
  - Nasopharyngitis [Recovered/Resolved]

NARRATIVE: CASE EVENT DATE: 202003
